FAERS Safety Report 7199877-9 (Version None)
Quarter: 2010Q4

REPORT INFORMATION
  Report Type: 
  Country: None (occurrence: None)
  Receive Date: 20101228
  Receipt Date: 20101221
  Transmission Date: 20110411
  Serious: Yes (Hospitalization, Other)
  Sender: FDA-Public Use
  Company Number: MX-JNJFOC-20101207359

PATIENT
  Sex: Male

DRUGS (1)
  1. DURAPTA [Suspect]
     Indication: SEPSIS
     Route: 041

REACTIONS (1)
  - CONVULSION [None]
